FAERS Safety Report 4814785-3 (Version None)
Quarter: 2005Q4

REPORT INFORMATION
  Report Type: 
  Country: None (occurrence: None)
  Receive Date: 20051028
  Receipt Date: 20041223
  Transmission Date: 20060501
  Serious: No
  Sender: FDA-Public Use
  Company Number: US-GLAXOSMITHKLINE-A0538678A

PATIENT
  Sex: Female

DRUGS (1)
  1. ADVAIR DISKUS 100/50 [Suspect]
     Indication: DRUG USE FOR UNKNOWN INDICATION
     Route: 055
     Dates: start: 20020401, end: 20040927

REACTIONS (7)
  - APHTHOUS STOMATITIS [None]
  - GLOSSODYNIA [None]
  - LICHEN PLANUS [None]
  - MOUTH INJURY [None]
  - ORAL FUNGAL INFECTION [None]
  - ORAL PAIN [None]
  - TOOTH DISORDER [None]
